FAERS Safety Report 15954061 (Version 1)
Quarter: 2019Q1

REPORT INFORMATION
  Report Type: Spontaneous
  Country: JP (occurrence: JP)
  Receive Date: 20190212
  Receipt Date: 20190212
  Transmission Date: 20190417
  Serious: No
  Sender: FDA-Public Use
  Company Number: JP-ELI_LILLY_AND_COMPANY-JP201812010663

PATIENT
  Age: 75 Year
  Sex: Male

DRUGS (5)
  1. AVOLVE [Concomitant]
     Active Substance: DUTASTERIDE
     Indication: BENIGN PROSTATIC HYPERPLASIA
     Dosage: 0.5 G, DAILY
     Route: 048
     Dates: start: 20181120, end: 20181227
  2. ZALUTIA 5MG [Suspect]
     Active Substance: TADALAFIL
     Indication: BENIGN PROSTATIC HYPERPLASIA
     Dosage: 5 MG, DAILY
     Route: 048
     Dates: start: 20180514, end: 20181210
  3. SANSONINTO [Concomitant]
     Indication: INSOMNIA
     Dosage: 2.5 MG, DAILY
     Route: 048
     Dates: start: 20180821
  4. URIEF [Concomitant]
     Active Substance: SILODOSIN
     Indication: BENIGN PROSTATIC HYPERPLASIA
     Dosage: 8 MG, DAILY
     Route: 048
     Dates: start: 20180305
  5. YOKUKANSAN [Concomitant]
     Active Substance: HERBALS
     Indication: INSOMNIA
     Dosage: 2.5 G, DAILY
     Route: 048
     Dates: start: 20180403, end: 20180820

REACTIONS (2)
  - Glaucoma [Unknown]
  - Deafness unilateral [Not Recovered/Not Resolved]

NARRATIVE: CASE EVENT DATE: 201808
